FAERS Safety Report 7528856-4 (Version None)
Quarter: 2011Q2

REPORT INFORMATION
  Report Type: 
  Country: None (occurrence: None)
  Receive Date: 20110607
  Receipt Date: 20101228
  Transmission Date: 20111010
  Serious: No
  Sender: FDA-Public Use
  Company Number: US-ASTRAZENECA-2011SE02671

PATIENT
  Age: 64 Year
  Sex: Female

DRUGS (4)
  1. PRILOSEC OTC [Suspect]
     Route: 048
  2. ANTIHYPERTENSIVES [Concomitant]
     Dosage: UNKNOWN
  3. DRUG USED IN DIABETES [Concomitant]
     Dosage: UNKNOWN
  4. VERTIGO MEDICATION [Concomitant]
     Dosage: UNKNOWN

REACTIONS (3)
  - BACK PAIN [None]
  - INCORRECT DRUG ADMINISTRATION DURATION [None]
  - DIARRHOEA [None]
